FAERS Safety Report 5140477-X (Version None)
Quarter: 2006Q4

REPORT INFORMATION
  Report Type: 
  Country: None (occurrence: None)
  Receive Date: 20061025
  Receipt Date: 20061025
  Transmission Date: 20070319
  Serious: Yes (Other)
  Sender: FDA-Public Use
  Company Number: None

PATIENT
  Age: 35 Year
  Sex: Male
  Weight: 65.7716 kg

DRUGS (1)
  1. PROPECIA 1MG MERICK [Suspect]
     Indication: MALE PATTERN BALDNESS
     Dosage: 1MG  ONCE A DAY  PO
     Route: 048
     Dates: start: 20030117, end: 20060626

REACTIONS (10)
  - BACK PAIN [None]
  - DIZZINESS [None]
  - DYSARTHRIA [None]
  - DYSPNOEA [None]
  - ERECTILE DYSFUNCTION [None]
  - FEELING ABNORMAL [None]
  - HEADACHE [None]
  - MEMORY IMPAIRMENT [None]
  - NAUSEA [None]
  - TINNITUS [None]
